FAERS Safety Report 10842457 (Version 1)
Quarter: 2015Q1

REPORT INFORMATION
  Report Type: Spontaneous
  Country: US (occurrence: US)
  Receive Date: 20150220
  Receipt Date: 20150220
  Transmission Date: 20150721
  Serious: No
  Sender: FDA-Public Use
  Company Number: US-ROXANE LABORATORIES, INC.-2015-RO-00306RO

PATIENT
  Sex: Female

DRUGS (1)
  1. BUPRENORPHINE HYDROCHLORIDE+NALOXONE HYDROCHLORIDE [Suspect]
     Active Substance: BUPRENORPHINE HYDROCHLORIDE\NALOXONE HYDROCHLORIDE
     Indication: DRUG DEPENDENCE
     Route: 060
     Dates: start: 2014

REACTIONS (1)
  - Drug withdrawal syndrome [Not Recovered/Not Resolved]
